FAERS Safety Report 11248925 (Version 1)
Quarter: 2015Q3

REPORT INFORMATION
  Report Type: Spontaneous
  Country: IT (occurrence: IT)
  Receive Date: 20150708
  Receipt Date: 20150708
  Transmission Date: 20151125
  Serious: Yes (Other)
  Sender: FDA-Public Use
  Company Number: IT-AMGEN-ITASP2015066598

PATIENT
  Age: 82 Year
  Sex: Male

DRUGS (1)
  1. XGEVA [Suspect]
     Active Substance: DENOSUMAB
     Indication: PRODUCT USED FOR UNKNOWN INDICATION
     Dosage: 120 MG, CYCLICAL
     Route: 058
     Dates: start: 20150402, end: 20150402

REACTIONS (3)
  - Acute kidney injury [Unknown]
  - Blood creatinine abnormal [Unknown]
  - Azotaemia [Unknown]

NARRATIVE: CASE EVENT DATE: 20150430
